FAERS Safety Report 25028555 (Version 1)
Quarter: 2025Q1

REPORT INFORMATION
  Report Type: Spontaneous
  Country: US (occurrence: US)
  Receive Date: 20250302
  Receipt Date: 20250302
  Transmission Date: 20250408
  Serious: No
  Sender: ROCHE
  Company Number: US-ROCHE-10000218527

PATIENT
  Sex: Female

DRUGS (18)
  1. XOLAIR [Suspect]
     Active Substance: OMALIZUMAB
     Indication: Osteoarthritis
     Route: 065
  2. ALBUTEROL [Concomitant]
     Active Substance: ALBUTEROL
  3. ALPRAZOLAM POW [Concomitant]
  4. BUMETANIDE [Concomitant]
     Active Substance: BUMETANIDE
  5. DICLOFENAC S SOL [Concomitant]
  6. ESTRADIOL [Concomitant]
     Active Substance: ESTRADIOL
     Route: 048
  7. IPRATROPIUM SOL [Concomitant]
  8. OZEMPIC [Concomitant]
     Active Substance: SEMAGLUTIDE
  9. PREDNISONE [Concomitant]
     Active Substance: PREDNISONE
  10. ROSUVASTATIN [Concomitant]
     Active Substance: ROSUVASTATIN
  11. TRELEGY ELLI AEP [Concomitant]
  12. TRIAMCINOLON CRE [Concomitant]
  13. ALBUTEROL [Concomitant]
     Active Substance: ALBUTEROL
  14. GABAPENTIN [Concomitant]
     Active Substance: GABAPENTIN
  15. SPIRONOLACTO [Concomitant]
  16. ESCITALOPRAM [Concomitant]
     Active Substance: ESCITALOPRAM OXALATE
  17. KLOR-CON M20 [Concomitant]
     Active Substance: POTASSIUM CHLORIDE
  18. MONTELUKAST [Concomitant]
     Active Substance: MONTELUKAST

REACTIONS (2)
  - Off label use [Unknown]
  - No adverse event [Unknown]
